FAERS Safety Report 19844267 (Version 1)
Quarter: 2021Q3

REPORT INFORMATION
  Report Type: Spontaneous
  Country: CN (occurrence: CN)
  Receive Date: 20210916
  Receipt Date: 20210916
  Transmission Date: 20211014
  Serious: Yes (Hospitalization, Other)
  Sender: FDA-Public Use
  Company Number: CN-PFIZER INC-202101154049

PATIENT
  Age: 9 Year
  Sex: Male
  Weight: 14 kg

DRUGS (2)
  1. CEFOTIAM [Concomitant]
     Active Substance: CEFOTIAM
     Indication: ASTHMA
     Dosage: 1 G, 1X/DAY
     Route: 041
     Dates: start: 20210903, end: 20210903
  2. SOLU?MEDROL [Suspect]
     Active Substance: METHYLPREDNISOLONE SODIUM SUCCINATE
     Indication: ASTHMA
     Dosage: 40 MG, ONCE A DAY
     Route: 041
     Dates: start: 20210903, end: 20210903

REACTIONS (14)
  - Hypotension [Recovering/Resolving]
  - Lip erythema [Recovering/Resolving]
  - Auricular swelling [Recovering/Resolving]
  - Feeling hot [Recovering/Resolving]
  - Paralysis [Recovering/Resolving]
  - Respiratory rate increased [Recovering/Resolving]
  - Bronchitis [Recovering/Resolving]
  - Erythema [Recovering/Resolving]
  - Hypoaesthesia [Recovering/Resolving]
  - Heart rate increased [Recovering/Resolving]
  - Urticaria [Recovering/Resolving]
  - Condition aggravated [Recovering/Resolving]
  - Rash [Recovering/Resolving]
  - Lip swelling [Recovering/Resolving]

NARRATIVE: CASE EVENT DATE: 20210903
